FAERS Safety Report 14151604 (Version 1)
Quarter: 2017Q4

REPORT INFORMATION
  Report Type: Spontaneous
  Country: US (occurrence: None)
  Receive Date: 20171101
  Receipt Date: 20171101
  Transmission Date: 20180321
  Serious: Yes (Hospitalization)
  Sender: FDA-Public Use
  Company Number: None

PATIENT
  Age: 63 Year
  Sex: Male
  Weight: 84.5 kg

DRUGS (3)
  1. DEXAMETHASONE. [Suspect]
     Active Substance: DEXAMETHASONE
     Dates: end: 20170924
  2. LENALIDOMIDE (CC-5013) [Suspect]
     Active Substance: LENALIDOMIDE
     Dates: end: 20170924
  3. VELCADE [Suspect]
     Active Substance: BORTEZOMIB
     Dates: end: 20170922

REACTIONS (4)
  - Neutrophil count increased [None]
  - Malaise [None]
  - Pneumonia [None]
  - Lung infiltration [None]

NARRATIVE: CASE EVENT DATE: 20170926
